FAERS Safety Report 21775114 (Version 1)
Quarter: 2022Q4

REPORT INFORMATION
  Report Type: Spontaneous
  Country: US (occurrence: None)
  Receive Date: 20221225
  Receipt Date: 20221225
  Transmission Date: 20230112
  Serious: No
  Sender: FDA-Public Use
  Company Number: 2022A413319

PATIENT
  Age: 65 Year
  Sex: Female
  Weight: 65.3 kg

DRUGS (1)
  1. PULMICORT FLEXHALER [Suspect]
     Active Substance: BUDESONIDE
     Indication: Asthma
     Dosage: 1 DAILY
     Route: 055
     Dates: start: 2020

REACTIONS (4)
  - Cough [Not Recovered/Not Resolved]
  - Device use issue [Not Recovered/Not Resolved]
  - Drug dose omission by device [Not Recovered/Not Resolved]
  - Product used for unknown indication [Not Recovered/Not Resolved]

NARRATIVE: CASE EVENT DATE: 20200101
